FAERS Safety Report 9520855 (Version 1)
Quarter: 2013Q1

REPORT INFORMATION
  Report Type: Spontaneous
  Country: US (occurrence: None)
  Receive Date: 20130305
  Receipt Date: 20130305
  Transmission Date: 20140127
  Serious: Yes (Hospitalization, Other)
  Sender: FDA-Public Use
  Company Number: 163-21880-12031812

PATIENT
  Age: 58 Year
  Sex: Male

DRUGS (15)
  1. REVLIMID (LENALIDOMIDE) (25 MILLIGRAM, CAPSULES) [Suspect]
     Indication: PLASMA CELL MYELOMA
     Dosage: 25 MG, 1 IN 1 D, PO
     Route: 048
     Dates: start: 201004
  2. PREDNISONE (PREDNISONE) (UNKNOWN) [Concomitant]
  3. ACYCLOVIR (ACICLOVIR) (UNKNOWN) [Concomitant]
  4. TESSALON PERLES (BENZONATATE) (CAPSULES) [Concomitant]
  5. IHALER (RESPIRATORY STIMULANTS) (UNKNOWN) [Concomitant]
  6. ZYRTEC (CETIRIZINE HYDROCHLORIDE) (UNKNOWN) [Concomitant]
  7. VIAGRA (SILDENAFIL CITRATE) (UNKNOWN) [Concomitant]
  8. TYLENOL (PARACETAMOL) (UNKNOWN) [Concomitant]
  9. MOMETASONE (MOMETASONE) (SPRAY (NOT INHALATION) [Concomitant]
  10. VITAMIN D (ERGOCALCIFIEROL) (SPRAY (NOT INHALATION) [Concomitant]
  11. FLOMAX (TAMSULOSIN HYDROCHLORIDE) (CAPSULES) [Concomitant]
  12. OXYCODONE (OXYCODONE) (TABLETS) [Concomitant]
  13. SYNTHROID (LEVOTHYROXINE SODIUM) (UNKNOWN) [Concomitant]
  14. SUPPLEMENTAAL OXYGEN (OXYGEN) (UNKNOWN) [Concomitant]
  15. IG (IMMUNOGLOBULIN HUMAN NORMAL) (UNKNOWN) [Concomitant]

REACTIONS (12)
  - Pneumonia respiratory syncytial viral [None]
  - Cough [None]
  - Dermatitis acneiform [None]
  - Feeling abnormal [None]
  - Weight decreased [None]
  - Local swelling [None]
  - White blood cell count decreased [None]
  - Red blood cell count decreased [None]
  - Fatigue [None]
  - Musculoskeletal pain [None]
  - Arthralgia [None]
  - Hypoaesthesia [None]
